FAERS Safety Report 14142785 (Version 1)
Quarter: 2017Q4

REPORT INFORMATION
  Report Type: Spontaneous
  Country: US (occurrence: US)
  Receive Date: 20171030
  Receipt Date: 20171030
  Transmission Date: 20180321
  Serious: Yes (Hospitalization, Other)
  Sender: FDA-Public Use
  Company Number: US-PFIZER INC-2017462204

PATIENT
  Age: 63 Year
  Sex: Female
  Weight: 62 kg

DRUGS (2)
  1. NICOTROL [Suspect]
     Active Substance: NICOTINE
     Indication: SMOKING CESSATION THERAPY
     Dosage: 4 MG, UNK
     Route: 055
     Dates: end: 20171019
  2. XANAX [Concomitant]
     Active Substance: ALPRAZOLAM
     Indication: PANIC ATTACK
     Dosage: 1 MG, 2X/DAY, AS NEEDED
     Route: 048
     Dates: start: 2013

REACTIONS (11)
  - Chronic obstructive pulmonary disease [Unknown]
  - Decreased appetite [Recovering/Resolving]
  - Irritability [Unknown]
  - Nervousness [Unknown]
  - Oxygen saturation decreased [Recovering/Resolving]
  - Condition aggravated [Unknown]
  - Anxiety [Recovering/Resolving]
  - Depression [Unknown]
  - Panic attack [Unknown]
  - Disease recurrence [Unknown]
  - Pneumonia [Unknown]

NARRATIVE: CASE EVENT DATE: 2015
